FAERS Safety Report 24051867 (Version 1)
Quarter: 2024Q3

REPORT INFORMATION
  Report Type: Spontaneous
  Country: JP (occurrence: None)
  Receive Date: 20240704
  Receipt Date: 20240704
  Transmission Date: 20241016
  Serious: Yes (Hospitalization)
  Sender: ASTRAZENECA
  Company Number: 2024A149530

PATIENT
  Age: 62 Year
  Sex: Male
  Weight: 57 kg

DRUGS (32)
  1. IMFINZI [Suspect]
     Active Substance: DURVALUMAB
     Indication: Hepatocellular carcinoma
     Dosage: DOSE UNKNOWN
     Route: 041
     Dates: start: 20230815, end: 20230815
  2. IMFINZI [Suspect]
     Active Substance: DURVALUMAB
     Indication: Hepatocellular carcinoma
     Dosage: DOSE UNKNOWN
     Route: 041
     Dates: start: 20231024
  3. IMJUDO [Suspect]
     Active Substance: TREMELIMUMAB\TREMELIMUMAB-ACTL
     Indication: Hepatocellular carcinoma
     Route: 041
     Dates: start: 20230815, end: 20230815
  4. DAPAGLIFLOZIN [Suspect]
     Active Substance: DAPAGLIFLOZIN
     Dosage: DOSE UNKNOWN
     Route: 048
     Dates: end: 20231114
  5. AMLODIPINE [Concomitant]
     Active Substance: AMLODIPINE BESYLATE
     Dosage: DOSE UNKNOWN
     Route: 065
  6. PEMAFIBRATE [Concomitant]
     Active Substance: PEMAFIBRATE
     Dosage: DOSE UNKNOWN
     Route: 065
  7. TELMISARTAN [Concomitant]
     Active Substance: TELMISARTAN
     Dosage: DOSE UNKNOWN
     Route: 065
  8. UREA [Concomitant]
     Active Substance: UREA
     Dosage: DOSE UNKNOWN
     Route: 062
  9. LANOCONAZOLE [Concomitant]
     Active Substance: LANOCONAZOLE
     Dosage: DOSE UNKNOWN
     Route: 062
  10. RIFAXIMIN [Concomitant]
     Active Substance: RIFAXIMIN
     Dosage: DOSE UNKNOWN
     Route: 065
  11. LANSOPRAZOLE [Concomitant]
     Active Substance: LANSOPRAZOLE
     Dosage: DOSE UNKNOWN
     Route: 065
  12. SOLIQUA 100/33 [Concomitant]
     Active Substance: INSULIN GLARGINE\LIXISENATIDE
     Dosage: 20-0-0
     Route: 065
     Dates: start: 20231114, end: 20231116
  13. APIDRA [Concomitant]
     Active Substance: INSULIN GLULISINE
     Dosage: 4-4-4
     Route: 065
     Dates: start: 20231114, end: 20231114
  14. APIDRA [Concomitant]
     Active Substance: INSULIN GLULISINE
     Dosage: 6-6-6
     Route: 065
     Dates: start: 20231115, end: 20231115
  15. APIDRA [Concomitant]
     Active Substance: INSULIN GLULISINE
     Dosage: 10-8-8
     Route: 065
     Dates: start: 20231118, end: 20231119
  16. APIDRA [Concomitant]
     Active Substance: INSULIN GLULISINE
     Dosage: 10-10-10
     Route: 065
     Dates: start: 20231120, end: 20231120
  17. APIDRA [Concomitant]
     Active Substance: INSULIN GLULISINE
     Dosage: 8-8-8
     Route: 065
     Dates: start: 20231116, end: 20231117
  18. APIDRA [Concomitant]
     Active Substance: INSULIN GLULISINE
     Dosage: 12-10-10
     Route: 065
     Dates: start: 20231121, end: 20231121
  19. APIDRA [Concomitant]
     Active Substance: INSULIN GLULISINE
     Dosage: 12-8-8
     Route: 065
     Dates: start: 20231122, end: 20231122
  20. APIDRA [Concomitant]
     Active Substance: INSULIN GLULISINE
     Dosage: 10-8-8
     Route: 065
     Dates: start: 20231123, end: 20231214
  21. APIDRA [Concomitant]
     Active Substance: INSULIN GLULISINE
     Dosage: 8-6-6
     Route: 065
     Dates: start: 20231215
  22. INSULIN GLARGINE [Concomitant]
     Active Substance: INSULIN GLARGINE
     Dosage: 24-0-0
     Route: 065
     Dates: start: 20231116, end: 20231116
  23. INSULIN GLARGINE [Concomitant]
     Active Substance: INSULIN GLARGINE
     Dosage: 28-0-0
     Route: 065
     Dates: start: 20231117, end: 20231117
  24. INSULIN GLARGINE [Concomitant]
     Active Substance: INSULIN GLARGINE
     Dosage: 34-0-0
     Route: 065
     Dates: start: 20231118, end: 20231120
  25. INSULIN GLARGINE [Concomitant]
     Active Substance: INSULIN GLARGINE
     Dosage: 18-0-0
     Route: 065
     Dates: start: 20231215, end: 20231225
  26. INSULIN GLARGINE [Concomitant]
     Active Substance: INSULIN GLARGINE
     Dosage: 20-0-0
     Route: 065
     Dates: start: 20231226, end: 20240122
  27. INSULIN GLARGINE [Concomitant]
     Active Substance: INSULIN GLARGINE
     Dosage: 22-0-0
     Route: 065
     Dates: start: 20240123, end: 20240513
  28. INSULIN GLARGINE [Concomitant]
     Active Substance: INSULIN GLARGINE
     Dosage: 36-0-0
     Route: 065
     Dates: start: 20231121, end: 20231121
  29. INSULIN GLARGINE [Concomitant]
     Active Substance: INSULIN GLARGINE
     Dosage: 33-0-0
     Route: 065
     Dates: start: 20231122, end: 20231122
  30. INSULIN GLARGINE [Concomitant]
     Active Substance: INSULIN GLARGINE
     Dosage: 28-0-0
     Route: 065
     Dates: start: 20231123, end: 20231123
  31. INSULIN GLARGINE [Concomitant]
     Active Substance: INSULIN GLARGINE
     Dosage: 24-0-0
     Route: 065
     Dates: start: 20231124, end: 20231214
  32. INSULIN GLARGINE [Concomitant]
     Active Substance: INSULIN GLARGINE
     Dosage: 23-0-0
     Route: 065
     Dates: start: 20240514

REACTIONS (3)
  - Thyroiditis [Recovering/Resolving]
  - Hypothyroidism [Recovering/Resolving]
  - Weight decreased [Unknown]

NARRATIVE: CASE EVENT DATE: 20230912
